FAERS Safety Report 24314372 (Version 1)
Quarter: 2024Q3

REPORT INFORMATION
  Report Type: Spontaneous
  Country: US (occurrence: US)
  Receive Date: 20240913
  Receipt Date: 20240913
  Transmission Date: 20241017
  Serious: No
  Sender: GE HEALTHCARE
  Company Number: US-GE HEALTHCARE-2024CSU006941

PATIENT
  Age: 65 Year
  Sex: Male
  Weight: 177 kg

DRUGS (2)
  1. OMNIPAQUE [Suspect]
     Active Substance: IOHEXOL
     Indication: Computerised tomogram thorax
     Dosage: 150 ML, TOTAL
     Route: 042
     Dates: start: 20240620, end: 20240620
  2. OMNIPAQUE [Suspect]
     Active Substance: IOHEXOL
     Indication: Urogram

REACTIONS (3)
  - Sneezing [Recovered/Resolved]
  - Lacrimation increased [Recovered/Resolved]
  - Nasal congestion [Recovered/Resolved]

NARRATIVE: CASE EVENT DATE: 20240620
